FAERS Safety Report 4415631-2 (Version None)
Quarter: 2004Q3

REPORT INFORMATION
  Report Type: 
  Country: None (occurrence: None)
  Receive Date: 20040730
  Receipt Date: 20040722
  Transmission Date: 20050211
  Serious: Yes (Hospitalization)
  Sender: FDA-Public Use
  Company Number: 2004UW15495

PATIENT
  Age: 62 Year
  Sex: Female
  Weight: 61.2356 kg

DRUGS (3)
  1. SEROQUEL [Suspect]
     Indication: ANXIETY
     Dosage: 100 MG PO
     Route: 048
  2. SEROQUEL [Suspect]
     Indication: ILLUSION
     Dosage: 100 MG PO
     Route: 048
  3. SEROQUEL [Suspect]
     Indication: SLEEP DISORDER
     Dosage: 100 MG PO
     Route: 048

REACTIONS (2)
  - COMA [None]
  - DIABETIC KETOACIDOSIS [None]
